FAERS Safety Report 11640247 (Version 1)
Quarter: 2015Q4

REPORT INFORMATION
  Report Type: Spontaneous
  Country: US (occurrence: US)
  Receive Date: 20151019
  Receipt Date: 20151019
  Transmission Date: 20160304
  Serious: Yes (Other)
  Sender: FDA-Public Use
  Company Number: US-ROCHE-1633549

PATIENT
  Sex: Female
  Weight: 83.99 kg

DRUGS (2)
  1. ESBRIET [Suspect]
     Active Substance: PIRFENIDONE
     Indication: IDIOPATHIC PULMONARY FIBROSIS
     Dosage: 2403MG DAILY
     Route: 048
     Dates: start: 20150821
  2. ESBRIET [Suspect]
     Active Substance: PIRFENIDONE
     Dosage: DOSE REDUCED
     Route: 048

REACTIONS (2)
  - Gastrointestinal haemorrhage [Unknown]
  - Abdominal pain upper [Recovering/Resolving]
